FAERS Safety Report 5406292-4 (Version None)
Quarter: 2007Q3

REPORT INFORMATION
  Report Type: 
  Country: None (occurrence: None)
  Receive Date: 20070806
  Receipt Date: 20070731
  Transmission Date: 20080115
  Serious: Yes (Other)
  Sender: FDA-Public Use
  Company Number: JP-ASTRAZENECA-2007AP04466

PATIENT
  Age: 70 Year
  Sex: Female

DRUGS (2)
  1. CRESTOR [Suspect]
     Indication: HYPERCHOLESTEROLAEMIA
     Route: 048
     Dates: start: 20070704, end: 20070716
  2. BEZATOL SR [Concomitant]
     Indication: HYPERCHOLESTEROLAEMIA
     Dates: start: 20070404

REACTIONS (3)
  - CHOLELITHIASIS [None]
  - HEPATIC FUNCTION ABNORMAL [None]
  - JAUNDICE [None]
